FAERS Safety Report 20618040 (Version 1)
Quarter: 2022Q1

REPORT INFORMATION
  Report Type: Spontaneous
  Country: US (occurrence: US)
  Receive Date: 20220321
  Receipt Date: 20220321
  Transmission Date: 20220423
  Serious: No
  Sender: FDA-Public Use
  Company Number: US-PFIZER INC-2021745702

PATIENT
  Age: 63 Year
  Sex: Male
  Weight: 72.562 kg

DRUGS (1)
  1. SUTENT [Suspect]
     Active Substance: SUNITINIB MALATE
     Indication: Malignant neoplasm of renal pelvis
     Dosage: 37.5 MG, CYCLIC (DAILY FOR 4 WEEK EVERY 6 WEEKS)
     Route: 048
     Dates: start: 20210310

REACTIONS (7)
  - Skin exfoliation [Recovered/Resolved]
  - Blister [Recovered/Resolved]
  - Pain [Recovered/Resolved]
  - Ageusia [Recovered/Resolved]
  - Oral discomfort [Recovered/Resolved]
  - Fatigue [Recovered/Resolved]
  - Blood pressure systolic increased [Recovered/Resolved]
